FAERS Safety Report 14123091 (Version 1)
Quarter: 2017Q4

REPORT INFORMATION
  Report Type: Spontaneous
  Country: US (occurrence: US)
  Receive Date: 20171025
  Receipt Date: 20171025
  Transmission Date: 20180321
  Serious: Yes (Other)
  Sender: FDA-Public Use
  Company Number: US-AUROBINDO-AUR-APL-2017-42050

PATIENT
  Age: 4 Month
  Sex: Male
  Weight: 4.1 kg

DRUGS (1)
  1. DEXAMETHASONE. [Suspect]
     Active Substance: DEXAMETHASONE
     Indication: NASAL OBSTRUCTION
     Dosage: CONVERSION USED: 1 MG OF DEXAMETHASONE EQUIVALENT TO 40 MG HYDROCORTISONE
     Route: 045

REACTIONS (2)
  - Incorrect route of drug administration [Unknown]
  - Cushing^s syndrome [Recovered/Resolved]
